FAERS Safety Report 9746794 (Version 3)
Quarter: 2014Q1

REPORT INFORMATION
  Report Type: Spontaneous
  Country: PT (occurrence: PT)
  Receive Date: 20131211
  Receipt Date: 20140227
  Transmission Date: 20141002
  Serious: Yes (Death, Hospitalization)
  Sender: FDA-Public Use
  Company Number: PHHY2013PT141720

PATIENT
  Age: 81 Year
  Sex: Female

DRUGS (2)
  1. WARFARIN [Suspect]
     Indication: PULMONARY EMBOLISM
  2. PHENYTOIN [Concomitant]

REACTIONS (6)
  - Death [Fatal]
  - Multi-organ failure [Unknown]
  - Skin necrosis [Unknown]
  - Erythema [Unknown]
  - Pyrexia [Unknown]
  - Inflammation [Unknown]
